FAERS Safety Report 17573493 (Version 1)
Quarter: 2020Q1

REPORT INFORMATION
  Report Type: Spontaneous
  Country: FR (occurrence: FR)
  Receive Date: 20200323
  Receipt Date: 20200323
  Transmission Date: 20200409
  Serious: Yes (Hospitalization, Other)
  Sender: FDA-Public Use
  Company Number: FR-AMGEN-FRASP2020046588

PATIENT
  Age: 40 Year
  Sex: Male
  Weight: 101 kg

DRUGS (1)
  1. NPLATE [Suspect]
     Active Substance: ROMIPLOSTIM
     Indication: IMMUNE THROMBOCYTOPENIC PURPURA
     Dosage: 750 MICROGRAM
     Route: 058
     Dates: start: 201710

REACTIONS (1)
  - Adrenal cortex necrosis [Not Recovered/Not Resolved]

NARRATIVE: CASE EVENT DATE: 20200209
